APPROVED DRUG PRODUCT: IMIPRAMINE PAMOATE
Active Ingredient: IMIPRAMINE PAMOATE
Strength: EQ 75MG HYDROCHLORIDE
Dosage Form/Route: CAPSULE;ORAL
Application: A090444 | Product #001 | TE Code: AB
Applicant: LUPIN LTD
Approved: Apr 16, 2010 | RLD: No | RS: No | Type: RX